FAERS Safety Report 7075388-6 (Version None)
Quarter: 2010Q4

REPORT INFORMATION
  Report Type: 
  Country: None (occurrence: None)
  Receive Date: 20101030
  Receipt Date: 20100817
  Transmission Date: 20110411
  Serious: No
  Sender: FDA-Public Use
  Company Number: US-WYE-H17037710

PATIENT
  Age: 57 Year
  Sex: Female
  Weight: 77.63 kg

DRUGS (1)
  1. ADVIL PM [Suspect]
     Indication: BACK PAIN
     Dosage: 1 CAPLET TWICE A DAY
     Route: 048
     Dates: start: 20100812, end: 20100812

REACTIONS (3)
  - COUGH [None]
  - HEADACHE [None]
  - NAUSEA [None]
